FAERS Safety Report 21170189 (Version 1)
Quarter: 2022Q3

REPORT INFORMATION
  Report Type: Other
  Country: JP (occurrence: JP)
  Receive Date: 20220804
  Receipt Date: 20220804
  Transmission Date: 20221027
  Serious: Yes (Other)
  Sender: FDA-Public Use
  Company Number: JP-CHUGAI-2022029552

PATIENT
  Age: 45 Year
  Sex: Male

DRUGS (4)
  1. CELLCEPT [Suspect]
     Active Substance: MYCOPHENOLATE MOFETIL
     Indication: Prophylaxis against transplant rejection
     Dosage: UNK
     Route: 048
  2. TACROLIMUS [Concomitant]
     Active Substance: TACROLIMUS
     Indication: Prophylaxis against transplant rejection
     Dosage: UNK
     Route: 065
  3. METHYLPREDNISOLONE [Concomitant]
     Active Substance: METHYLPREDNISOLONE
     Indication: Prophylaxis against transplant rejection
     Dosage: UNK
     Route: 065
  4. GUSPERIMUS TRIHYDROCHLORIDE [Concomitant]
     Active Substance: GUSPERIMUS TRIHYDROCHLORIDE
     Indication: Transplant rejection
     Dosage: UNK
     Route: 065

REACTIONS (5)
  - IgA nephropathy [Unknown]
  - Post infection glomerulonephritis [Unknown]
  - Pneumonia bacterial [Recovering/Resolving]
  - Pneumonia [Unknown]
  - Cytomegalovirus test positive [Unknown]
